FAERS Safety Report 6323093-3 (Version None)
Quarter: 2009Q3

REPORT INFORMATION
  Report Type: 
  Country: None (occurrence: None)
  Receive Date: 20090824
  Receipt Date: 20090407
  Transmission Date: 20100115
  Serious: No
  Sender: FDA-Public Use
  Company Number: US-ABBOTT-09P-163-0563916-00

PATIENT
  Sex: Female
  Weight: 83.99 kg

DRUGS (5)
  1. NIASPAN [Suspect]
     Indication: BLOOD CHOLESTEROL INCREASED
     Route: 048
     Dates: start: 20090309, end: 20090311
  2. ALPHAPROIC ACID [Concomitant]
     Indication: NEUROPATHY PERIPHERAL
     Route: 048
  3. LANTUS [Concomitant]
     Indication: DIABETES MELLITUS
     Dosage: AT BEDTIME, DAILY
     Route: 058
  4. NOVOLOG [Concomitant]
     Indication: DIABETES MELLITUS
     Dosage: BEFORE MEALS, THREE TIMES PER DAY
     Route: 058
  5. METFORMIN HCL [Concomitant]
     Indication: DIABETES MELLITUS
     Route: 048
     Dates: start: 20090309

REACTIONS (2)
  - FLUSHING [None]
  - NEUROPATHY PERIPHERAL [None]
